FAERS Safety Report 6609226-X (Version None)
Quarter: 2010Q1

REPORT INFORMATION
  Report Type: 
  Country: None (occurrence: None)
  Receive Date: 20100224
  Receipt Date: 20100209
  Transmission Date: 20100710
  Serious: Yes (Other)
  Sender: FDA-Public Use
  Company Number: JPI-P-009701

PATIENT
  Age: 66 Year
  Sex: Female
  Weight: 86.1834 kg

DRUGS (14)
  1. XYREM [Suspect]
     Indication: CHRONIC FATIGUE SYNDROME
     Dosage: 6 GM (3 GM, 2 IN 1 D), ORAL
     Route: 048
     Dates: start: 20100206, end: 20100207
  2. MODAFINIL [Concomitant]
  3. ZOLPIDEM [Concomitant]
  4. VALGANCICLOVIR HCL [Concomitant]
  5. SOLIFENACIN [Concomitant]
  6. PREDNISONE [Concomitant]
  7. DULOXETINE HYDROCHLORIDE [Concomitant]
  8. ESTERIFIED ESTROGENS AND METHYLTESTOSTERONE [Concomitant]
  9. PROGESTERONE [Concomitant]
  10. L-METHYLFOLATE [Concomitant]
  11. ATORVASTATIN CALCIUM [Concomitant]
  12. LIOTHYRONINE SODIUM [Concomitant]
  13. BOVINE EXTRACT [Concomitant]
  14. LEVOTHYROXINE [Concomitant]

REACTIONS (2)
  - BLOOD PRESSURE INCREASED [None]
  - PALPITATIONS [None]
